FAERS Safety Report 15583632 (Version 4)
Quarter: 2020Q4

REPORT INFORMATION
  Report Type: Spontaneous
  Country: US (occurrence: US)
  Receive Date: 20181104
  Receipt Date: 20201109
  Transmission Date: 20210113
  Serious: Yes (Other)
  Sender: FDA-Public Use
  Company Number: US-PFIZER INC-2018447508

PATIENT
  Age: 73 Year
  Sex: Female
  Weight: 52.61 kg

DRUGS (2)
  1. ANASTROZOLE. [Concomitant]
     Active Substance: ANASTROZOLE
     Dosage: 1 MG, UNK
     Dates: start: 2017
  2. IBRANCE [Suspect]
     Active Substance: PALBOCICLIB
     Indication: BREAST CANCER METASTATIC
     Dosage: 100 MG, UNK
     Dates: start: 2017

REACTIONS (5)
  - Blindness [Unknown]
  - Ear congestion [Recovered/Resolved]
  - Pollakiuria [Unknown]
  - Hypoacusis [Unknown]
  - Dry mouth [Unknown]
